FAERS Safety Report 15334971 (Version 1)
Quarter: 2018Q3

REPORT INFORMATION
  Report Type: Spontaneous
  Country: US (occurrence: US)
  Receive Date: 20180827
  Receipt Date: 20180827
  Transmission Date: 20181010
  Serious: Yes (Hospitalization)
  Sender: FDA-Public Use
  Company Number: None

PATIENT
  Sex: Male

DRUGS (7)
  1. ASPIRIN. [Concomitant]
     Active Substance: ASPIRIN
  2. TRAMADOL. [Concomitant]
     Active Substance: TRAMADOL
  3. CAPECITABINE. [Suspect]
     Active Substance: CAPECITABINE
     Indication: PRODUCT USED FOR UNKNOWN INDICATION
     Route: 048
     Dates: start: 20180519
  4. ALPHA LIPOIC ACID [Concomitant]
     Active Substance: .ALPHA.-LIPOIC ACID
  5. ATENOLOL. [Concomitant]
     Active Substance: ATENOLOL
  6. LYRICA [Concomitant]
     Active Substance: PREGABALIN
  7. VALSART/HCTZ [Concomitant]

REACTIONS (2)
  - Therapy cessation [None]
  - Surgery [None]
